FAERS Safety Report 17276953 (Version 1)
Quarter: 2020Q1

REPORT INFORMATION
  Report Type: Spontaneous
  Country: US (occurrence: US)
  Receive Date: 20191226
  Receipt Date: 20191226
  Transmission Date: 20200409
  Serious: Yes (Hospitalization)
  Sender: FDA-Public Use
  Company Number: None

PATIENT
  Age: 77 Year
  Sex: Female
  Weight: 58.1 kg

DRUGS (2)
  1. BORTEZOMIB. [Concomitant]
     Active Substance: BORTEZOMIB
     Indication: PLASMA CELL MYELOMA
     Route: 058
     Dates: start: 20191105, end: 20191213
  2. DARATUMUMAB [Suspect]
     Active Substance: DARATUMUMAB
     Indication: PLASMA CELL MYELOMA
     Route: 058
     Dates: start: 20191105, end: 20191213

REACTIONS (5)
  - Tachycardia [None]
  - Hypoxia [None]
  - Corona virus infection [None]
  - Respiratory syncytial virus infection [None]
  - Dyspnoea [None]

NARRATIVE: CASE EVENT DATE: 20191220
